FAERS Safety Report 25141357 (Version 1)
Quarter: 2025Q1

REPORT INFORMATION
  Report Type: Report from Study
  Country: US (occurrence: US)
  Receive Date: 20250331
  Receipt Date: 20250331
  Transmission Date: 20250409
  Serious: Yes (Other)
  Sender: TEVA
  Company Number: US-TEVA-VS-3313775

PATIENT
  Age: 24 Year
  Sex: Female

DRUGS (1)
  1. CLARAVIS [Suspect]
     Active Substance: ISOTRETINOIN
     Indication: Product used for unknown indication
     Route: 065

REACTIONS (17)
  - Anxiety [Unknown]
  - Sinus operation [Unknown]
  - Wisdom teeth removal [Unknown]
  - Lip dry [Unknown]
  - Chapped lips [Unknown]
  - Adenoidectomy [Unknown]
  - Asthma [Unknown]
  - Acne [Unknown]
  - Anaemia [Unknown]
  - Dry skin [Unknown]
  - Tonsillectomy [Unknown]
  - Photosensitivity reaction [Unknown]
  - Corrective lens user [Unknown]
  - Psoriasis [Unknown]
  - Depression [Unknown]
  - Nasal dryness [Unknown]
  - Eye disorder [Unknown]
